FAERS Safety Report 12273708 (Version 2)
Quarter: 2016Q2

REPORT INFORMATION
  Report Type: Spontaneous
  Country: IT (occurrence: IT)
  Receive Date: 20160415
  Receipt Date: 20160505
  Transmission Date: 20160815
  Serious: Yes (Other)
  Sender: FDA-Public Use
  Company Number: PHHY2016IT049768

PATIENT
  Age: 63 Year
  Sex: Male
  Weight: 54 kg

DRUGS (1)
  1. LORAZEPAM. [Suspect]
     Active Substance: LORAZEPAM
     Indication: PRODUCT USED FOR UNKNOWN INDICATION
     Dosage: 2.5 MG, QD
     Route: 065
     Dates: start: 20160310, end: 20160411

REACTIONS (3)
  - Drop attacks [Recovered/Resolved]
  - Drug abuse [Unknown]
  - Injury [Recovered/Resolved]

NARRATIVE: CASE EVENT DATE: 20160310
